FAERS Safety Report 14154387 (Version 2)
Quarter: 2017Q4

REPORT INFORMATION
  Report Type: Spontaneous
  Country: NL (occurrence: NL)
  Receive Date: 20171102
  Receipt Date: 20171116
  Transmission Date: 20180321
  Serious: Yes (Other)
  Sender: FDA-Public Use
  Company Number: NL-LHC-2017226

PATIENT
  Age: 54 Year
  Sex: Female

DRUGS (1)
  1. KOOLDIOXIDE MEDISCH [Suspect]
     Active Substance: CARBON DIOXIDE
     Indication: LAPAROSCOPY

REACTIONS (1)
  - Intestinal perforation [Unknown]

NARRATIVE: CASE EVENT DATE: 20171013
